FAERS Safety Report 4819120-2 (Version None)
Quarter: 2005Q4

REPORT INFORMATION
  Report Type: 
  Country: None (occurrence: None)
  Receive Date: 20051103
  Receipt Date: 20051005
  Transmission Date: 20060501
  Serious: Yes (Death)
  Sender: FDA-Public Use
  Company Number: 2005UW14963

PATIENT
  Age: 18 Year
  Sex: Male
  Weight: 112.3 kg

DRUGS (2)
  1. SEROQUEL [Suspect]
     Indication: SCHIZOPHRENIA
     Route: 048
     Dates: start: 20050127, end: 20050804
  2. GEODON [Suspect]
     Indication: SCHIZOPHRENIA
     Route: 048

REACTIONS (5)
  - CARDIAC DISORDER [None]
  - DRUG TOXICITY [None]
  - HEPATOMEGALY [None]
  - OBESITY [None]
  - OVERDOSE [None]
